FAERS Safety Report 12549335 (Version 6)
Quarter: 2017Q1

REPORT INFORMATION
  Report Type: Report from Study
  Country: JP (occurrence: JP)
  Receive Date: 20160712
  Receipt Date: 20170209
  Transmission Date: 20170428
  Serious: Yes (Death, Hospitalization, Other)
  Sender: FDA-Public Use
  Company Number: JP-CELGENEUS-JPN-2016070047

PATIENT
  Age: 85 Year
  Sex: Female

DRUGS (14)
  1. DECADRON [Concomitant]
     Active Substance: DEXAMETHASONE
     Indication: PLASMA CELL MYELOMA
     Dosage: 20 MG
     Route: 048
     Dates: start: 20150805, end: 20150902
  2. DEXAMETHASONE. [Concomitant]
     Active Substance: DEXAMETHASONE
     Dosage: 20 MG
     Route: 048
     Dates: start: 20150805, end: 20150826
  3. POMALYST [Suspect]
     Active Substance: POMALIDOMIDE
     Indication: PLASMA CELL MYELOMA
     Dosage: 4 MG
     Route: 048
     Dates: start: 20150707, end: 20150713
  4. POMALYST [Suspect]
     Active Substance: POMALIDOMIDE
     Dosage: 3 MG
     Route: 048
     Dates: start: 20150909, end: 20150915
  5. POMALYST [Suspect]
     Active Substance: POMALIDOMIDE
     Dosage: 3 MG
     Route: 048
     Dates: start: 20150714, end: 20150727
  6. WARFARIN [Concomitant]
     Active Substance: WARFARIN
     Indication: PROPHYLAXIS
     Dosage: 1.5 MG
     Route: 048
     Dates: end: 20150920
  7. LANSOPRAZOLE. [Concomitant]
     Active Substance: LANSOPRAZOLE
     Indication: PROPHYLAXIS
     Route: 048
  8. DECADRON [Concomitant]
     Active Substance: DEXAMETHASONE
     Dosage: 20 MG
     Route: 048
     Dates: start: 20150909, end: 20150916
  9. TRAMAL [Concomitant]
     Active Substance: TRAMADOL
     Indication: BACK PAIN
     Route: 048
  10. DEXAMETHASONE. [Concomitant]
     Active Substance: DEXAMETHASONE
     Indication: PLASMA CELL MYELOMA
     Dosage: 20 MG
     Route: 048
     Dates: start: 20150707, end: 20150728
  11. POMALYST [Suspect]
     Active Substance: POMALIDOMIDE
     Dosage: 3 MG
     Route: 048
     Dates: start: 20150805, end: 20150825
  12. HACHIMIJIOGAN [Concomitant]
     Active Substance: HERBALS
     Indication: PLASMA CELL MYELOMA
     Route: 048
  13. CELECOX [Concomitant]
     Active Substance: CELECOXIB
     Indication: PRODUCT USED FOR UNKNOWN INDICATION
     Route: 048
  14. POMALYST [Suspect]
     Active Substance: POMALIDOMIDE
     Dosage: 1  MG
     Route: 048
     Dates: start: 20150916, end: 20150918

REACTIONS (14)
  - Bone marrow failure [Recovered/Resolved]
  - Lymphocyte count decreased [Recovered/Resolved]
  - Fall [Not Recovered/Not Resolved]
  - Haemoglobin decreased [Unknown]
  - Blood albumin decreased [Unknown]
  - Blood albumin decreased [Unknown]
  - Subdural haematoma [Fatal]
  - Neutrophil count decreased [Unknown]
  - Blood uric acid increased [Unknown]
  - Contusion [Not Recovered/Not Resolved]
  - Lymphocyte count decreased [Unknown]
  - Bone marrow failure [Recovering/Resolving]
  - Platelet count decreased [Not Recovered/Not Resolved]
  - Anaemia [Not Recovered/Not Resolved]

NARRATIVE: CASE EVENT DATE: 20150713
